FAERS Safety Report 23961891 (Version 1)
Quarter: 2024Q2

REPORT INFORMATION
  Report Type: Spontaneous
  Country: US (occurrence: US)
  Receive Date: 20240611
  Receipt Date: 20240611
  Transmission Date: 20240716
  Serious: Yes (Other)
  Sender: FDA-Public Use
  Company Number: US-GSKCCFUS-Case-02025383_AE-112337

PATIENT

DRUGS (1)
  1. TRELEGY ELLIPTA [Suspect]
     Active Substance: FLUTICASONE FUROATE\UMECLIDINIUM BROMIDE\VILANTEROL TRIFENATATE
     Indication: Chronic obstructive pulmonary disease
     Dosage: 1 PUFF(S), QD, 100/62.5/25
     Route: 055

REACTIONS (4)
  - Pulmonary haemorrhage [Unknown]
  - Bronchopulmonary aspergillosis [Not Recovered/Not Resolved]
  - Sputum increased [Not Recovered/Not Resolved]
  - Pulmonary mass [Not Recovered/Not Resolved]
